FAERS Safety Report 7403394-8 (Version None)
Quarter: 2011Q2

REPORT INFORMATION
  Report Type: 
  Country: None (occurrence: None)
  Receive Date: 20110408
  Receipt Date: 20110404
  Transmission Date: 20111010
  Serious: Yes (Hospitalization)
  Sender: FDA-Public Use
  Company Number: A0899121A

PATIENT
  Age: 63 Year
  Sex: Male

DRUGS (1)
  1. AVANDIA [Suspect]
     Indication: TYPE 2 DIABETES MELLITUS
     Dosage: 8MG PER DAY
     Route: 065
     Dates: start: 20040521, end: 20070524

REACTIONS (16)
  - MITRAL VALVE CALCIFICATION [None]
  - TREMOR [None]
  - CHEST INJURY [None]
  - CORONARY ARTERY DISEASE [None]
  - CAROTID ARTERY STENOSIS [None]
  - LEFT ATRIAL DILATATION [None]
  - DIASTOLIC DYSFUNCTION [None]
  - CORONARY ARTERY OCCLUSION [None]
  - MYOCARDIAL ISCHAEMIA [None]
  - ROAD TRAFFIC ACCIDENT [None]
  - MITRAL VALVE INCOMPETENCE [None]
  - RIGHT ATRIAL DILATATION [None]
  - SILENT MYOCARDIAL INFARCTION [None]
  - ASTHENIA [None]
  - AMNESIA [None]
  - AORTIC VALVE SCLEROSIS [None]
